FAERS Safety Report 20855176 (Version 1)
Quarter: 2022Q2

REPORT INFORMATION
  Report Type: Spontaneous
  Country: US (occurrence: None)
  Receive Date: 20220520
  Receipt Date: 20220520
  Transmission Date: 20220721
  Serious: Yes (Hospitalization, Other)
  Sender: FDA-Public Use
  Company Number: 2022A186381

PATIENT
  Age: 71 Year
  Sex: Female
  Weight: 89.2 kg

DRUGS (54)
  1. OMEPRAZOLE [Suspect]
     Active Substance: OMEPRAZOLE
     Indication: Gastrooesophageal reflux disease
     Route: 065
     Dates: start: 201204
  2. OMEPRAZOLE [Suspect]
     Active Substance: OMEPRAZOLE
     Indication: Gastrooesophageal reflux disease
     Route: 065
     Dates: start: 201204
  3. DEXILANT [Suspect]
     Active Substance: DEXLANSOPRAZOLE
     Indication: Gastrooesophageal reflux disease
     Route: 065
     Dates: start: 201206, end: 201610
  4. DEXILANT [Suspect]
     Active Substance: DEXLANSOPRAZOLE
     Indication: Gastrooesophageal reflux disease
     Route: 065
     Dates: start: 201206, end: 201610
  5. ASPIRIN [Concomitant]
     Active Substance: ASPIRIN
     Indication: Cardiac failure acute
     Dates: start: 2007
  6. CRESTOR [Concomitant]
     Active Substance: ROSUVASTATIN CALCIUM
     Indication: Blood cholesterol
     Dates: start: 201501, end: 201506
  7. PREDNISONE [Concomitant]
     Active Substance: PREDNISONE
  8. CEFDINIR [Concomitant]
     Active Substance: CEFDINIR
  9. LEVEMIR [Concomitant]
     Active Substance: INSULIN DETEMIR
  10. AMLODIPINE [Concomitant]
     Active Substance: AMLODIPINE BESYLATE
  11. METFORMIN [Concomitant]
     Active Substance: METFORMIN HYDROCHLORIDE
  12. DULOXETINE [Concomitant]
     Active Substance: DULOXETINE
     Indication: Depression
     Dates: start: 2001
  13. BENZONATATE [Concomitant]
     Active Substance: BENZONATATE
     Dates: start: 20161122
  14. LASIX [Concomitant]
     Active Substance: FUROSEMIDE
     Indication: Drug abuse
     Dates: start: 201612
  15. CALCITRIOL [Concomitant]
     Active Substance: CALCITRIOL
  16. TRAMADOL [Concomitant]
     Active Substance: TRAMADOL
     Indication: Pain
     Dates: start: 2016
  17. ENOXAPARIN [Concomitant]
     Active Substance: ENOXAPARIN
  18. ROSUVASTATIN [Concomitant]
     Active Substance: ROSUVASTATIN
  19. FUROSEMIDE [Concomitant]
     Active Substance: FUROSEMIDE
     Indication: Oedema
  20. FUROSEMIDE [Concomitant]
     Active Substance: FUROSEMIDE
     Indication: Swelling
  21. HYDRALAZINE [Concomitant]
     Active Substance: HYDRALAZINE HYDROCHLORIDE
  22. CYMBALTA [Concomitant]
     Active Substance: DULOXETINE HYDROCHLORIDE
  23. GLIMEPIRIDE [Concomitant]
     Active Substance: GLIMEPIRIDE
  24. ELIQUIS [Concomitant]
     Active Substance: APIXABAN
  25. GABAPENTIN [Concomitant]
     Active Substance: GABAPENTIN
     Indication: Neuropathy peripheral
     Dates: start: 1990
  26. LOMOTIL [Concomitant]
     Active Substance: ATROPINE SULFATE\DIPHENOXYLATE HYDROCHLORIDE
  27. BUMEX [Concomitant]
     Active Substance: BUMETANIDE
     Indication: Polyuria
     Dates: start: 2016
  28. LEVAQUIN [Concomitant]
     Active Substance: LEVOFLOXACIN
     Indication: Antibiotic level
     Dates: start: 2017
  29. LEVAQUIN [Concomitant]
     Active Substance: LEVOFLOXACIN
     Indication: Urinary tract infection
     Dates: start: 2017
  30. FENTANYL [Concomitant]
     Active Substance: FENTANYL
  31. MELOXICAM [Concomitant]
     Active Substance: MELOXICAM
  32. LORAZEPAM [Concomitant]
     Active Substance: LORAZEPAM
  33. CEFUROXIME [Concomitant]
     Active Substance: CEFUROXIME
  34. PRIMIDONE [Concomitant]
     Active Substance: PRIMIDONE
  35. VITAMINS [Concomitant]
     Active Substance: VITAMINS
  36. ACETAMINOPHEN [Concomitant]
     Active Substance: ACETAMINOPHEN
  37. MIRAPEX [Concomitant]
     Active Substance: PRAMIPEXOLE DIHYDROCHLORIDE
  38. ZITHROMAX [Concomitant]
     Active Substance: AZITHROMYCIN DIHYDRATE
     Indication: Antibiotic level
     Dates: start: 2017
  39. AZITHROCIN [Concomitant]
     Indication: Nasopharyngitis
     Dates: start: 2017
  40. KEFLEX [Concomitant]
     Active Substance: CEPHALEXIN
     Indication: Urinary tract infection
     Dates: start: 2018
  41. KEFLEX [Concomitant]
     Active Substance: CEPHALEXIN
     Indication: Antibiotic level
     Dates: start: 2018
  42. CEPOL [Concomitant]
     Indication: Antibiotic level
     Dates: start: 2018
  43. CEPOL [Concomitant]
     Indication: Urinary tract infection
     Dates: start: 2018
  44. CILOXAN [Concomitant]
     Active Substance: CIPROFLOXACIN HYDROCHLORIDE
     Indication: Urinary tract infection
     Dates: start: 201710
  45. CILOXAN [Concomitant]
     Active Substance: CIPROFLOXACIN HYDROCHLORIDE
     Indication: Antibiotic level
     Dates: start: 201710
  46. BACTRIM [Concomitant]
     Active Substance: SULFAMETHOXAZOLE\TRIMETHOPRIM
     Indication: Urinary tract infection
     Dates: start: 201710
  47. BACTRIM [Concomitant]
     Active Substance: SULFAMETHOXAZOLE\TRIMETHOPRIM
     Indication: Antibiotic level
     Dates: start: 201710
  48. PRINIVIL [Concomitant]
     Active Substance: LISINOPRIL
     Indication: Antibiotic level
  49. PRINIVIL [Concomitant]
     Active Substance: LISINOPRIL
     Indication: Urinary tract infection
  50. ALDACTONE [Concomitant]
     Active Substance: SPIRONOLACTONE
     Indication: Blood pressure measurement
     Dates: start: 201703
  51. ALDACTAZIDE [Concomitant]
     Active Substance: HYDROCHLOROTHIAZIDE\SPIRONOLACTONE
     Indication: Blood pressure measurement
     Dates: start: 201703
  52. LIPITOR [Concomitant]
     Active Substance: ATORVASTATIN CALCIUM
     Indication: Blood cholesterol
     Dates: start: 2001, end: 2011
  53. B 12 COMPLEX [Concomitant]
     Indication: Anaemia
     Dates: start: 2013
  54. CRANBERRY TABLET [Concomitant]
     Indication: Renal impairment
     Dates: start: 2013

REACTIONS (5)
  - Renal failure [Not Recovered/Not Resolved]
  - Acute kidney injury [Unknown]
  - Chronic kidney disease [Unknown]
  - Nephrogenic anaemia [Unknown]
  - Renal impairment [Unknown]

NARRATIVE: CASE EVENT DATE: 20160101
